FAERS Safety Report 5186421-0 (Version None)
Quarter: 2006Q4

REPORT INFORMATION
  Report Type: 
  Country: None (occurrence: None)
  Receive Date: 20061220
  Receipt Date: 20060315
  Transmission Date: 20070319
  Serious: Yes (Other)
  Sender: FDA-Public Use
  Company Number: JP-ELI_LILLY_AND_COMPANY-JP200603004465

PATIENT
  Age: 71 Year
  Sex: Female

DRUGS (6)
  1. LIPITOR [Concomitant]
     Indication: HYPERLIPIDAEMIA
     Route: 048
  2. AMLODIPINE BESYLATE [Concomitant]
     Indication: HYPERTENSION
     Route: 048
  3. DIOVANE [Concomitant]
     Indication: HYPERTENSION
     Route: 048
  4. BUFFERIN [Concomitant]
     Route: 048
  5. ZANTAC [Concomitant]
     Route: 065
  6. EVISTA [Suspect]
     Indication: OSTEOPOROSIS
     Dosage: 60 MG, DAILY (1/D)
     Route: 048
     Dates: start: 20050830, end: 20051107

REACTIONS (1)
  - GLAUCOMA [None]
